FAERS Safety Report 13103342 (Version 4)
Quarter: 2019Q3

REPORT INFORMATION
  Report Type: Spontaneous
  Country: US (occurrence: US)
  Receive Date: 20170110
  Receipt Date: 20190830
  Transmission Date: 20191004
  Serious: No
  Sender: FDA-Public Use
  Company Number: US-BIOGEN-2017BI00339643

PATIENT
  Sex: Female

DRUGS (5)
  1. AVONEX [Suspect]
     Active Substance: INTERFERON BETA-1A
     Indication: MULTIPLE SCLEROSIS
     Route: 050
     Dates: start: 20031010
  2. TECFIDERA [Suspect]
     Active Substance: DIMETHYL FUMARATE
     Indication: MULTIPLE SCLEROSIS
     Dosage: STARTING DOSE
     Route: 050
     Dates: start: 20170126
  3. TECFIDERA [Suspect]
     Active Substance: DIMETHYL FUMARATE
     Dosage: MAINTENANCE DOSE
     Route: 050
  4. AVONEX [Suspect]
     Active Substance: INTERFERON BETA-1A
     Route: 050
     Dates: start: 19990303, end: 20020326
  5. AVONEX [Suspect]
     Active Substance: INTERFERON BETA-1A
     Route: 030
     Dates: start: 20020326, end: 20180228

REACTIONS (18)
  - Kyphosis [Unknown]
  - Anal incontinence [Unknown]
  - Drug ineffective [Unknown]
  - Hot flush [Unknown]
  - Weight decreased [Unknown]
  - Intervertebral disc degeneration [Unknown]
  - Fall [Recovered/Resolved]
  - Urinary incontinence [Unknown]
  - Muscular weakness [Unknown]
  - White matter lesion [Unknown]
  - Atrophy [Unknown]
  - Asthenia [Unknown]
  - Progressive multiple sclerosis [Unknown]
  - Alopecia [Unknown]
  - Depression [Unknown]
  - Amnesia [Unknown]
  - Dysstasia [Unknown]
  - Tearfulness [Unknown]
